FAERS Safety Report 6366803-1 (Version None)
Quarter: 2009Q3

REPORT INFORMATION
  Report Type: 
  Country: None (occurrence: None)
  Receive Date: 20090921
  Receipt Date: 20090909
  Transmission Date: 20100115
  Serious: Yes (Hospitalization)
  Sender: FDA-Public Use
  Company Number: US-WATSON-2009-07411

PATIENT
  Sex: Female

DRUGS (9)
  1. HYDROCODONE BITARTRATE/ACETAMINOPHEN 5/500 (WATSON LABORATORIES) [Suspect]
     Indication: HEADACHE
     Dosage: 1-2 TABLET, Q4-6H, PRN
     Route: 048
     Dates: start: 20010101
  2. HYDROCODONE BITARTRATE/ACETAMINOPHEN 5/500 (WATSON LABORATORIES) [Suspect]
     Indication: PAIN IN EXTREMITY
  3. HYDROCODONE BITARTRATE/ACETAMINOPHEN 5/500 (WATSON LABORATORIES) [Suspect]
     Indication: BACK PAIN
  4. HYDROCODONE BITARTRATE/ACETAMINOPHEN 5/500 (WATSON LABORATORIES) [Suspect]
     Indication: NECK PAIN
  5. HYDROCODONE BITARTRATE/ACETAMINOPHEN 5/500 (WATSON LABORATORIES) [Suspect]
     Indication: MUSCULOSKELETAL DISCOMFORT
  6. CARDIZEM [Suspect]
     Indication: ATRIAL FIBRILLATION
     Dosage: 1 TABLET, DAILY
     Route: 048
     Dates: start: 20090605
  7. WARFARIN SODIUM [Suspect]
     Indication: ANTICOAGULANT THERAPY
     Dosage: 1 TABLET QOD, 1 1/2 TABLET QOD (SUN, TUES, THURS)
     Route: 048
     Dates: start: 20090605
  8. METFORMIN HCL [Suspect]
     Indication: DIABETES MELLITUS
     Dosage: 1 TABLET, DAILY
     Route: 048
     Dates: start: 20090717
  9. METFORMIN HCL [Suspect]
     Dosage: 1 TABLET, BID
     Route: 048
     Dates: start: 20090618, end: 20090716

REACTIONS (7)
  - ABDOMINAL PAIN UPPER [None]
  - ATRIAL FIBRILLATION [None]
  - DIABETES MELLITUS [None]
  - DIZZINESS [None]
  - DRUG INEFFECTIVE [None]
  - HEADACHE [None]
  - NAUSEA [None]
